FAERS Safety Report 9373309 (Version 2)
Quarter: 2013Q3

REPORT INFORMATION
  Report Type: Spontaneous
  Country: FR (occurrence: FR)
  Receive Date: 20130627
  Receipt Date: 20130718
  Transmission Date: 20140515
  Serious: Yes (Hospitalization)
  Sender: FDA-Public Use
  Company Number: FR-TEVA-415404ISR

PATIENT
  Age: 91 Year
  Sex: Female

DRUGS (7)
  1. FUROSEMIDE TEVA 40 MG [Suspect]
     Indication: CARDIAC FAILURE
     Dosage: 40 MILLIGRAM DAILY; SCORED TABLET
     Route: 048
     Dates: start: 20130511, end: 20130610
  2. VASTAREL [Suspect]
     Indication: DIZZINESS
     Dosage: FOR MORE THAN 1 YEAR
     Route: 048
  3. KARDEGIC [Suspect]
     Dosage: 1 DOSAGE FORMS DAILY; FOR MORE THAN ONE YEAR. POWDER FOR ORAL SOLUTION IN SINGLE-DOSE SACHET
     Route: 048
  4. ODRIK [Suspect]
     Indication: HYPERTENSION
     Dosage: 2 MILLIGRAM DAILY; FOR MORE THAN ONE YEAR
     Route: 048
  5. STILNOX [Suspect]
     Dosage: 5 MILLIGRAM DAILY; FOR MORE THAN ONE YEAR
     Route: 048
  6. ISORYTHM [Suspect]
     Indication: ARRHYTHMIA
     Dosage: 125 MILLIGRAM DAILY; FOR MORE THAN MORE YEAR. PROLONGED-RELEASE CAPSULE, HARD
     Route: 048
  7. CORDARONE [Suspect]
     Indication: ARRHYTHMIA
     Dosage: FROM: 2 DAYS BEFORE HOSPITALIZATION
     Route: 048
     Dates: start: 20130607

REACTIONS (4)
  - Arrhythmia [Unknown]
  - Pulmonary oedema [Recovered/Resolved]
  - Fall [Recovered/Resolved]
  - Dizziness [Recovered/Resolved]
